FAERS Safety Report 4515632-X (Version None)
Quarter: 2004Q4

REPORT INFORMATION
  Report Type: 
  Country: None (occurrence: None)
  Receive Date: 20040930
  Receipt Date: 20040602
  Transmission Date: 20050328
  Serious: No
  Sender: FDA-Public Use
  Company Number: USA-2004-0015314

PATIENT
  Sex: Female

DRUGS (1)
  1. SPECTRACEF [Suspect]
     Indication: SINUSITIS
     Dosage: 200 MG, BID

REACTIONS (4)
  - ABDOMINAL PAIN [None]
  - NAUSEA [None]
  - OFF LABEL USE [None]
  - VOMITING [None]
